FAERS Safety Report 6156778-2 (Version None)
Quarter: 2009Q2

REPORT INFORMATION
  Report Type: 
  Country: None (occurrence: None)
  Receive Date: 20090416
  Receipt Date: 20090407
  Transmission Date: 20091009
  Serious: Yes (Other)
  Sender: FDA-Public Use
  Company Number: PHHY2009CA12794

PATIENT
  Sex: Female

DRUGS (5)
  1. EXELON [Suspect]
     Indication: DEMENTIA
     Dosage: 9.5 MG/24 H
     Route: 062
  2. SYNTHROID [Concomitant]
  3. LOPRESOR [Concomitant]
  4. CALCIUM CARBONATE W/VITAMIN D NOS [Concomitant]
  5. FERROUS SULFATE TAB [Concomitant]

REACTIONS (5)
  - AGGRESSION [None]
  - AGITATION [None]
  - CONFUSIONAL STATE [None]
  - DEMENTIA [None]
  - HALLUCINATION [None]
